FAERS Safety Report 4824613-8 (Version None)
Quarter: 2005Q4

REPORT INFORMATION
  Report Type: 
  Country: None (occurrence: None)
  Receive Date: 20051108
  Receipt Date: 20051021
  Transmission Date: 20060501
  Serious: Yes (Other)
  Sender: FDA-Public Use
  Company Number: GBS051018672

PATIENT
  Age: 10 Year
  Sex: Male
  Weight: 35 kg

DRUGS (1)
  1. STRATTERA [Suspect]
     Indication: ATTENTION DEFICIT/HYPERACTIVITY DISORDER
     Dosage: 1.4 MG/KG/DAY
     Dates: start: 20050801, end: 20050928

REACTIONS (6)
  - CONFUSIONAL STATE [None]
  - DEPRESSED LEVEL OF CONSCIOUSNESS [None]
  - DIZZINESS [None]
  - DRUG EFFECT DECREASED [None]
  - HEADACHE [None]
  - SOMNOLENCE [None]
